FAERS Safety Report 17299237 (Version 4)
Quarter: 2025Q2

REPORT INFORMATION
  Report Type: Spontaneous
  Country: BG (occurrence: BG)
  Receive Date: 20200122
  Receipt Date: 20250418
  Transmission Date: 20250716
  Serious: Yes (Death)
  Sender: MYLAN
  Company Number: BG-SA-2019SA295583

PATIENT
  Age: 50 Year
  Sex: Male

DRUGS (5)
  1. DOCETAXEL [Suspect]
     Active Substance: DOCETAXEL
     Indication: Small cell lung cancer
  2. CARBOPLATIN [Suspect]
     Active Substance: CARBOPLATIN
     Indication: Lung neoplasm malignant
  3. CARBOPLATIN [Suspect]
     Active Substance: CARBOPLATIN
     Indication: Small cell lung cancer
  4. PIRFENIDONE [Suspect]
     Active Substance: PIRFENIDONE
     Indication: Idiopathic pulmonary fibrosis
  5. NEBIVOLOL [Concomitant]
     Active Substance: NEBIVOLOL
     Indication: Hypertension
     Dosage: 2.5 MILLIGRAM, QD

REACTIONS (5)
  - Idiopathic pulmonary fibrosis [Fatal]
  - Small cell lung cancer [Fatal]
  - Concomitant disease progression [Fatal]
  - Malignant neoplasm progression [Fatal]
  - Disease progression [Fatal]

NARRATIVE: CASE EVENT DATE: 20160101
